FAERS Safety Report 4427346-5 (Version None)
Quarter: 2004Q3

REPORT INFORMATION
  Report Type: 
  Country: None (occurrence: None)
  Receive Date: 20040816
  Receipt Date: 20040816
  Transmission Date: 20050211
  Serious: Yes (Other)
  Sender: FDA-Public Use
  Company Number: None

PATIENT
  Age: 18 Year
  Sex: Female

DRUGS (2)
  1. ROCEPHIN [Suspect]
     Indication: URINARY TRACT INFECTION
     Dosage: 2 GM IV QD
     Route: 042
  2. ACYCLOVIR [Suspect]
     Indication: URINARY TRACT INFECTION
     Dosage: 830 MG IV Q 8 H
     Route: 042

REACTIONS (1)
  - RASH [None]
